FAERS Safety Report 4606523-4 (Version None)
Quarter: 2005Q2

REPORT INFORMATION
  Report Type: 
  Country: None (occurrence: None)
  Receive Date: 20050223
  Receipt Date: 20041004
  Transmission Date: 20051028
  Serious: Yes (Hospitalization, Disabling)
  Sender: FDA-Public Use
  Company Number: WAES  0410USA00546

PATIENT
  Age: 47 Year
  Sex: Female
  Weight: 56.6996 kg

DRUGS (2)
  1. ZOCOR [Suspect]
     Indication: BLOOD CHOLESTEROL INCREASED
     Dosage: 20 MG/HS/PO
     Route: 048
     Dates: start: 20040828, end: 20040924
  2. ZOCOR [Suspect]
     Indication: LOW DENSITY LIPOPROTEIN
     Dosage: 20 MG/HS/PO
     Route: 048
     Dates: start: 20040828, end: 20040924

REACTIONS (2)
  - ASTHENIA [None]
  - MYOPATHY [None]
